FAERS Safety Report 4719669-7 (Version None)
Quarter: 2005Q3

REPORT INFORMATION
  Report Type: 
  Country: None (occurrence: None)
  Receive Date: 20050721
  Receipt Date: 20040609
  Transmission Date: 20060218
  Serious: No
  Sender: FDA-Public Use
  Company Number: US-GLAXOSMITHKLINE-A0513991A

PATIENT
  Age: 72 Year
  Sex: Female

DRUGS (14)
  1. AVANDIA [Suspect]
     Dosage: 4MG TWICE PER DAY
     Route: 048
  2. PROZAC [Concomitant]
  3. VASOTEC RPD [Concomitant]
  4. SYNTHROID [Concomitant]
  5. DYAZIDE [Concomitant]
  6. IMDUR [Concomitant]
  7. K-DUR 10 [Concomitant]
  8. ARIMIDEX [Concomitant]
  9. NEURONTIN [Concomitant]
  10. FOLIC ACID [Concomitant]
  11. IRON [Concomitant]
  12. ASPIRIN [Concomitant]
  13. CENTRUM VITAMINS [Concomitant]
  14. VITAMIN B6 [Concomitant]

REACTIONS (3)
  - BLOOD GLUCOSE FLUCTUATION [None]
  - PHARMACEUTICAL PRODUCT COMPLAINT [None]
  - TREMOR [None]
